FAERS Safety Report 5303097-X (Version None)
Quarter: 2007Q2

REPORT INFORMATION
  Report Type: 
  Country: None (occurrence: None)
  Receive Date: 20070420
  Receipt Date: 20070407
  Transmission Date: 20071010
  Serious: Yes (Other)
  Sender: FDA-Public Use
  Company Number: PHEH2007US04543

PATIENT
  Age: 52 Year
  Sex: Male

DRUGS (1)
  1. ZELNORM [Suspect]
     Dosage: UNK, UNK
     Route: 048
     Dates: start: 20050401

REACTIONS (1)
  - LOSS OF CONSCIOUSNESS [None]
